FAERS Safety Report 8586521-9 (Version None)
Quarter: 2012Q3

REPORT INFORMATION
  Report Type: 
  Country: None (occurrence: None)
  Receive Date: 20120810
  Receipt Date: 20120802
  Transmission Date: 20120928
  Serious: Yes (Other)
  Sender: FDA-Public Use
  Company Number: CA-JNJFOC-20120801885

PATIENT
  Sex: Female
  Weight: 108 kg

DRUGS (1)
  1. REMICADE [Suspect]
     Indication: PRODUCT USED FOR UNKNOWN INDICATION
     Dosage: DOSE STRENGTH: 100 MG/VIAL
     Route: 042

REACTIONS (3)
  - URINARY INCONTINENCE [None]
  - ANXIETY [None]
  - SYNCOPE [None]
